FAERS Safety Report 5587121-5 (Version None)
Quarter: 2008Q1

REPORT INFORMATION
  Report Type: 
  Country: None (occurrence: None)
  Receive Date: 20080110
  Receipt Date: 20080104
  Transmission Date: 20080703
  Serious: Yes (Other)
  Sender: FDA-Public Use
  Company Number: D0055657A

PATIENT
  Sex: Male

DRUGS (2)
  1. SUMATRIPTAN SUCCINATE [Suspect]
     Route: 065
  2. VERAPAMIL [Suspect]
     Route: 065

REACTIONS (2)
  - AGGRESSION [None]
  - DRUG INTERACTION [None]
